FAERS Safety Report 6072978-4 (Version None)
Quarter: 2009Q1

REPORT INFORMATION
  Report Type: 
  Country: None (occurrence: None)
  Receive Date: 20090206
  Receipt Date: 20090127
  Transmission Date: 20090719
  Serious: Yes (Other)
  Sender: FDA-Public Use
  Company Number: GXKR2009US01233

PATIENT
  Age: 56 Year
  Sex: Female
  Weight: 80 kg

DRUGS (11)
  1. PROPOFOL [Suspect]
     Indication: GENERAL ANAESTHESIA
     Dosage: 2 MG/KG
  2. BISOPROLOL FUMARATE [Suspect]
  3. LOSARTAN POTASSIUM [Concomitant]
  4. ESOMEPRAZOLE MAGNESIUM [Concomitant]
  5. CHLORTHALIDONE [Concomitant]
  6. OXCARBAZEPINE [Concomitant]
  7. SIMVASTATIN [Concomitant]
  8. SERTRALINE [Concomitant]
  9. METFORMIN HCL [Concomitant]
  10. EZETIMIBE [Concomitant]
  11. SEVOFLURANE [Concomitant]

REACTIONS (2)
  - BRADYCARDIA [None]
  - DRUG INTERACTION [None]
